FAERS Safety Report 7002718-3 (Version None)
Quarter: 2010Q3

REPORT INFORMATION
  Report Type: 
  Country: None (occurrence: None)
  Receive Date: 20100920
  Receipt Date: 20100412
  Transmission Date: 20110219
  Serious: Yes (Hospitalization)
  Sender: FDA-Public Use
  Company Number: US-ASTRAZENECA-2009UW16924

PATIENT
  Sex: Male
  Weight: 131.5 kg

DRUGS (3)
  1. SEROQUEL [Suspect]
     Indication: MOOD SWINGS
     Route: 048
     Dates: start: 20030901
  2. DIVALPROEX SODIUM [Concomitant]
     Dosage: 500-1000 MG DAILY
     Route: 048
     Dates: start: 20030901
  3. TRAZODONE HCL [Concomitant]
     Route: 048
     Dates: start: 20030901

REACTIONS (2)
  - DIABETIC KETOACIDOSIS [None]
  - TYPE 1 DIABETES MELLITUS [None]
